FAERS Safety Report 8176772-X (Version None)
Quarter: 2012Q1

REPORT INFORMATION
  Report Type: 
  Country: None (occurrence: None)
  Receive Date: 20120301
  Receipt Date: 20120227
  Transmission Date: 20120608
  Serious: No
  Sender: FDA-Public Use
  Company Number: US-PFIZER INC-2012033304

PATIENT
  Sex: Female

DRUGS (5)
  1. SYMBICORT [Concomitant]
     Indication: ASTHMA
     Dosage: DAILY
  2. SINGULAIR [Concomitant]
     Dosage: UNK
  3. ACCOLATE [Concomitant]
     Indication: ASTHMA
     Dosage: UNK
  4. LO/OVRAL-28 [Suspect]
     Indication: CONTRACEPTION
     Dosage: UNK
     Dates: start: 19930101
  5. OGESTREL 0.5/50-21 [Suspect]
     Dosage: UNK, 1X/DAY
     Route: 048

REACTIONS (2)
  - CIRCUMSTANCE OR INFORMATION CAPABLE OF LEADING TO MEDICATION ERROR [None]
  - METRORRHAGIA [None]
